FAERS Safety Report 6708030-1 (Version None)
Quarter: 2010Q2

REPORT INFORMATION
  Report Type: 
  Country: None (occurrence: None)
  Receive Date: 20100503
  Receipt Date: 20090115
  Transmission Date: 20101027
  Serious: Yes (Other)
  Sender: FDA-Public Use
  Company Number: FR-BAYER-200911799GPV

PATIENT
  Age: 24 Year
  Sex: Female

DRUGS (1)
  1. BETAFERON [Suspect]
     Indication: MULTIPLE SCLEROSIS
     Dosage: DOSE INCREASE
     Route: 058
     Dates: start: 20080715, end: 20090115

REACTIONS (4)
  - ERYTHEMA [None]
  - INJECTION SITE PAIN [None]
  - SCAR [None]
  - SKIN NECROSIS [None]
